FAERS Safety Report 8492674 (Version 4)
Quarter: 2012Q4

REPORT INFORMATION
  Report Type: 
  Country: FR (occurrence: FR)
  Receive Date: 20120403
  Receipt Date: 20121030
  Transmission Date: 20130627
  Serious: Yes (Other)
  Sender: FDA-Public Use
  Company Number: FR-FRI-1000029564

PATIENT
  Age: 47 Year
  Sex: Male
  Weight: 85 kg

DRUGS (2)
  1. MILNACIPRAN [Suspect]
     Indication: DEPRESSION
     Dosage: 150 mg
     Route: 048
     Dates: start: 20110420, end: 201203
  2. LEXOMIL [Concomitant]

REACTIONS (5)
  - Bifascicular block [Not Recovered/Not Resolved]
  - Syncope [Not Recovered/Not Resolved]
  - Dysaesthesia [Not Recovered/Not Resolved]
  - Prescribed overdose [Recovered/Resolved]
  - Off label use [Recovered/Resolved]
